FAERS Safety Report 6414748-0 (Version None)
Quarter: 2009Q4

REPORT INFORMATION
  Report Type: 
  Country: None (occurrence: None)
  Receive Date: 20091026
  Receipt Date: 20091026
  Transmission Date: 20100525
  Serious: Yes (Disabling)
  Sender: FDA-Public Use
  Company Number: None

PATIENT
  Age: 57 Year
  Sex: Male
  Weight: 83.9154 kg

DRUGS (1)
  1. SUBOXONE [Suspect]
     Indication: DRUG DEPENDENCE
     Dosage: 2 8 MG. TABLETS DAILY PO
     Route: 048
     Dates: start: 20060301, end: 20091023

REACTIONS (4)
  - DENTAL CARIES [None]
  - ECONOMIC PROBLEM [None]
  - TOOTH DISORDER [None]
  - TOOTH LOSS [None]
